FAERS Safety Report 14260392 (Version 2)
Quarter: 2019Q2

REPORT INFORMATION
  Report Type: Spontaneous
  Country: CN (occurrence: CN)
  Receive Date: 20171207
  Receipt Date: 20190418
  Transmission Date: 20190711
  Serious: Yes (Death, Other)
  Sender: FDA-Public Use
  Company Number: CN-MYLANLABS-2017M1076287

PATIENT
  Age: 43 Year
  Sex: Male

DRUGS (5)
  1. OSIMERTINIB. [Suspect]
     Active Substance: OSIMERTINIB
     Indication: LUNG ADENOCARCINOMA
     Dosage: 160 MILLIGRAM, ONCE
     Route: 048
  2. ERLOTINIB MYLAN [Suspect]
     Active Substance: ERLOTINIB
     Dosage: 150 MILLIGRAM, ONCE
     Route: 048
  3. ERLOTINIB [Suspect]
     Active Substance: ERLOTINIB
     Indication: LUNG ADENOCARCINOMA
     Dosage: UNK UNK, ONCE
     Route: 065
  4. OSIMERTINIB. [Suspect]
     Active Substance: OSIMERTINIB
     Indication: LUNG ADENOCARCINOMA
     Dosage: 80MG DAILY
     Route: 065
  5. AFATINIB [Suspect]
     Active Substance: AFATINIB
     Indication: LUNG ADENOCARCINOMA
     Dosage: 40MG DAILY
     Route: 065

REACTIONS (2)
  - EGFR gene mutation [Fatal]
  - Drug resistance [Fatal]
